FAERS Safety Report 5357780-0 (Version None)
Quarter: 2007Q2

REPORT INFORMATION
  Report Type: 
  Country: None (occurrence: None)
  Receive Date: 20070614
  Receipt Date: 20070604
  Transmission Date: 20071010
  Serious: Yes (Hospitalization)
  Sender: FDA-Public Use
  Company Number: DE-ABBOTT-07P-062-0370028-00

PATIENT
  Age: 73 Year
  Sex: Female
  Weight: 57 kg

DRUGS (21)
  1. ZEMPLAR [Suspect]
     Indication: HYPERPARATHYROIDISM SECONDARY
     Route: 042
     Dates: start: 20060918, end: 20061001
  2. ZEMPLAR [Suspect]
     Dates: end: 20061201
  3. ZEMPLAR [Suspect]
     Dates: end: 20070401
  4. CALCIUM ACETATE [Concomitant]
     Indication: HYPERPARATHYROIDISM SECONDARY
     Route: 048
     Dates: end: 20061102
  5. CALCIUM ACETATE [Concomitant]
     Route: 048
     Dates: start: 20061103
  6. COLECALCIFEROL [Concomitant]
     Indication: HYPERPARATHYROIDISM SECONDARY
     Route: 048
  7. MIMPARA [Concomitant]
     Indication: HYPERPARATHYROIDISM SECONDARY
     Route: 048
     Dates: end: 20061201
  8. MIMPARA [Concomitant]
     Dates: start: 20061201
  9. METOPROLOL SUCCINATE [Concomitant]
     Indication: DRUG USE FOR UNKNOWN INDICATION
     Route: 048
  10. MOXONIDINE [Concomitant]
     Indication: DRUG USE FOR UNKNOWN INDICATION
     Route: 048
  11. DOXAZOSIN MESYLATE [Concomitant]
     Indication: DRUG USE FOR UNKNOWN INDICATION
     Route: 048
  12. URAPIDIL [Concomitant]
     Indication: DRUG USE FOR UNKNOWN INDICATION
     Route: 048
  13. DREISAVIT N [Concomitant]
     Indication: DRUG USE FOR UNKNOWN INDICATION
     Route: 048
  14. NOVAMINSULFON [Concomitant]
     Indication: PAIN
     Route: 048
  15. MACROGOL [Concomitant]
     Indication: DRUG USE FOR UNKNOWN INDICATION
  16. NIFEDIPINE [Concomitant]
     Indication: HYPERTENSION
     Route: 048
  17. DARBEPOETIN ALFA [Concomitant]
     Indication: DRUG USE FOR UNKNOWN INDICATION
     Route: 042
  18. FERRIC SODIUM GLUCONATE COMPLEX [Concomitant]
     Indication: DRUG USE FOR UNKNOWN INDICATION
     Route: 042
  19. MINOXIDIL [Concomitant]
     Indication: DRUG USE FOR UNKNOWN INDICATION
     Route: 048
     Dates: start: 20061103
  20. OMEPRAZOLE [Concomitant]
     Indication: DRUG USE FOR UNKNOWN INDICATION
     Route: 048
     Dates: start: 20061103
  21. CITALOPRAM HYDROBROMIDE [Concomitant]
     Indication: DRUG USE FOR UNKNOWN INDICATION
     Route: 048
     Dates: start: 20061103

REACTIONS (2)
  - HYDROCEPHALUS [None]
  - INTRACRANIAL PRESSURE INCREASED [None]
